FAERS Safety Report 10582440 (Version 2)
Quarter: 2014Q4

REPORT INFORMATION
  Report Type: Spontaneous
  Country: US (occurrence: US)
  Receive Date: 20141113
  Receipt Date: 20141113
  Transmission Date: 20150529
  Serious: No
  Sender: FDA-Public Use
  Company Number: US-ENDO PHARMACEUTICALS INC.-VALS20140022

PATIENT
  Age: 74 Year
  Sex: Male
  Weight: 144.83 kg

DRUGS (1)
  1. VALSTAR [Suspect]
     Active Substance: VALRUBICIN
     Indication: BLADDER CANCER
     Route: 043
     Dates: start: 20140305, end: 20140402

REACTIONS (5)
  - Haemorrhage urinary tract [Recovered/Resolved]
  - Urge incontinence [Unknown]
  - Underdose [Recovered/Resolved]
  - Bladder instillation procedure [Recovered/Resolved]
  - Cystitis [Not Recovered/Not Resolved]

NARRATIVE: CASE EVENT DATE: 201403
